FAERS Safety Report 7457175-X (Version None)
Quarter: 2011Q2

REPORT INFORMATION
  Report Type: 
  Country: None (occurrence: None)
  Receive Date: 20110502
  Receipt Date: 20110502
  Transmission Date: 20111010
  Serious: No
  Sender: FDA-Public Use
  Company Number: None

PATIENT

DRUGS (1)
  1. CLINDAMYCIN [Suspect]
     Indication: FURUNCLE
     Dosage: 150 MG 1 Q 6 HOURS FOR 7 DAYS ORAL
     Route: 048
     Dates: start: 20110124

REACTIONS (1)
  - CHILLS [None]
